FAERS Safety Report 9362882 (Version 1)
Quarter: 2013Q2

REPORT INFORMATION
  Report Type: Spontaneous
  Country: US (occurrence: US)
  Receive Date: 20130624
  Receipt Date: 20130624
  Transmission Date: 20140414
  Serious: Yes (Hospitalization, Other)
  Sender: FDA-Public Use
  Company Number: US-ROCHE-1226596

PATIENT
  Age: 54 Year
  Sex: Female
  Weight: 74.91 kg

DRUGS (15)
  1. PEGASYS [Suspect]
     Indication: CHRONIC HEPATITIS C
     Route: 058
     Dates: start: 20130506, end: 20130607
  2. RIBASPHERE [Suspect]
     Indication: CHRONIC HEPATITIS C
     Dosage: TWO DIVIDED DOSES
     Route: 048
     Dates: start: 20130506, end: 20130607
  3. RIBASPHERE [Suspect]
     Dosage: DOSE REDUCED
     Route: 048
     Dates: start: 20130506, end: 20130607
  4. INCIVEK [Suspect]
     Indication: CHRONIC HEPATITIS C
     Route: 065
     Dates: start: 20130506, end: 20130607
  5. SEROQUEL XR [Concomitant]
     Route: 065
  6. PROPRANOLOL HYDROCHLORIDE [Concomitant]
     Route: 065
  7. WELLBUTRIN [Concomitant]
     Route: 065
  8. HYDROCODONE/ACETAMINOPHEN [Concomitant]
     Indication: PAIN
     Route: 065
  9. EXELON [Concomitant]
     Route: 065
  10. KEPPRA [Concomitant]
     Route: 065
  11. OMEPRAZOLE [Concomitant]
     Route: 065
  12. XIFAXAN [Concomitant]
     Route: 065
  13. LACTULOSE [Concomitant]
     Dosage: 10 G/ 15 ML SOLUTION15 ML AS NEEDED THRICE A DAY.
     Route: 065
  14. LORATADINE [Concomitant]
     Route: 065
  15. CLONIDINE HCL [Concomitant]
     Route: 065

REACTIONS (6)
  - Anaemia [Recovering/Resolving]
  - Pancytopenia [Recovered/Resolved]
  - Hypertension [Unknown]
  - Epistaxis [Unknown]
  - Vomiting [Unknown]
  - Epistaxis [Recovered/Resolved]
